FAERS Safety Report 7201610-9 (Version None)
Quarter: 2010Q4

REPORT INFORMATION
  Report Type: 
  Country: None (occurrence: None)
  Receive Date: 20101216
  Receipt Date: 20101207
  Transmission Date: 20110411
  Serious: Yes (Hospitalization, Other)
  Sender: FDA-Public Use
  Company Number: 2010US005013

PATIENT
  Age: 68 Year
  Sex: Male

DRUGS (3)
  1. PROGRAF [Suspect]
     Indication: RENAL TRANSPLANT
     Dosage: 8 MG, UID/QD, ORAL
     Route: 048
     Dates: start: 20100410
  2. PREDNISONE TAB [Concomitant]
  3. MYCOPHENOLATE SODIUM (MYCOPHENOLATE SODIUM) [Concomitant]

REACTIONS (5)
  - BIOPSY KIDNEY ABNORMAL [None]
  - FOCAL SEGMENTAL GLOMERULOSCLEROSIS [None]
  - KIDNEY FIBROSIS [None]
  - RENAL IMPAIRMENT [None]
  - RENAL TUBULAR ATROPHY [None]
